FAERS Safety Report 8033989-2 (Version None)
Quarter: 2012Q1

REPORT INFORMATION
  Report Type: 
  Country: None (occurrence: None)
  Receive Date: 20120110
  Receipt Date: 20120105
  Transmission Date: 20120608
  Serious: Yes (Hospitalization)
  Sender: FDA-Public Use
  Company Number: US-MERCK-1110USA00447

PATIENT
  Age: 69 Year
  Sex: Male

DRUGS (3)
  1. GERITOL COMPLETE [Concomitant]
     Route: 065
     Dates: start: 20030101
  2. FOSAMAX [Suspect]
     Indication: OSTEOPOROSIS
     Route: 048
     Dates: start: 19970101, end: 20090101
  3. ASPIRIN [Concomitant]
     Indication: PROPHYLAXIS
     Route: 065
     Dates: start: 20030101

REACTIONS (8)
  - OSTEOPOROSIS [None]
  - FEMUR FRACTURE [None]
  - IMPAIRED HEALING [None]
  - NEPHROLITHIASIS [None]
  - ADVERSE EVENT [None]
  - LIMB DEFORMITY [None]
  - TOOTH DISORDER [None]
  - RIB FRACTURE [None]
